FAERS Safety Report 7200012-9 (Version None)
Quarter: 2010Q4

REPORT INFORMATION
  Report Type: 
  Country: None (occurrence: None)
  Receive Date: 20101228
  Receipt Date: 20101220
  Transmission Date: 20110411
  Serious: Yes (Death)
  Sender: FDA-Public Use
  Company Number: GXBR2010US02130

PATIENT
  Sex: Male

DRUGS (6)
  1. HYDROXYZINE PAMOATE CAPSULES USP (NGX) [Suspect]
     Dosage: 50 MG, BID
     Route: 048
     Dates: start: 20101021
  2. MIRTAZAPINE TABLETS (NGX) [Suspect]
     Indication: ANXIETY
     Dosage: 30 MG, QHS
     Route: 048
     Dates: start: 20090101
  3. GABAPENTIN [Suspect]
     Indication: ANXIETY
     Dosage: 300 MG, TID
     Route: 048
  4. TRAZODONE [Suspect]
     Indication: ANXIETY
     Dosage: 50 MG, QHS
     Route: 048
  5. BUSPIRONE [Suspect]
     Indication: ANXIETY
     Dosage: 15 MG, TID
     Route: 048
  6. VERAPAMIL [Concomitant]
     Indication: HYPERTENSION
     Dosage: 180 MG, BID
     Route: 048

REACTIONS (9)
  - ABDOMINAL PAIN [None]
  - ANXIETY [None]
  - CHEST PAIN [None]
  - COMPLETED SUICIDE [None]
  - DECREASED APPETITE [None]
  - DIARRHOEA [None]
  - GASTROINTESTINAL DISORDER [None]
  - HYPOTONIA [None]
  - WEIGHT DECREASED [None]
